FAERS Safety Report 12862773 (Version 1)
Quarter: 2016Q4

REPORT INFORMATION
  Report Type: Spontaneous
  Country: US (occurrence: US)
  Receive Date: 20161019
  Receipt Date: 20161019
  Transmission Date: 20170207
  Serious: No
  Sender: FDA-Public Use
  Company Number: US-ASTELLAS-2016US023238

PATIENT
  Sex: Female

DRUGS (1)
  1. MYCAMINE [Suspect]
     Active Substance: MICAFUNGIN SODIUM
     Indication: ANTIFUNGAL TREATMENT
     Dosage: UNK UNK, UNKNOWN FREQ.
     Route: 065

REACTIONS (1)
  - Hypersensitivity [Unknown]
